FAERS Safety Report 6872505-5 (Version None)
Quarter: 2010Q3

REPORT INFORMATION
  Report Type: 
  Country: None (occurrence: None)
  Receive Date: 20100723
  Receipt Date: 20081201
  Transmission Date: 20110219
  Serious: No
  Sender: FDA-Public Use
  Company Number: US-PFIZER INC-2008078763

PATIENT
  Sex: Female
  Weight: 70.5 kg

DRUGS (11)
  1. CHANTIX [Suspect]
     Indication: SMOKING CESSATION THERAPY
     Route: 048
     Dates: start: 20080501
  2. ALL OTHER THERAPEUTIC PRODUCTS [Interacting]
  3. LEVOTHYROXINE SODIUM [Concomitant]
  4. CLONIDINE [Concomitant]
  5. GABAPENTIN [Concomitant]
  6. SEROQUEL [Concomitant]
  7. MIRTAZAPINE [Concomitant]
  8. REQUIP [Concomitant]
  9. ASPIRIN [Concomitant]
  10. ALEVE (CAPLET) [Concomitant]
  11. CELEBREX [Concomitant]

REACTIONS (7)
  - CHEST PAIN [None]
  - DRUG DOSE OMISSION [None]
  - DRUG INTERACTION [None]
  - ELECTROCARDIOGRAM CHANGE [None]
  - PRURITUS [None]
  - RASH [None]
  - RASH PRURITIC [None]
